FAERS Safety Report 8603377-6 (Version None)
Quarter: 2012Q3

REPORT INFORMATION
  Report Type: 
  Country: None (occurrence: None)
  Receive Date: 20120817
  Receipt Date: 20120807
  Transmission Date: 20120928
  Serious: Yes (Hospitalization)
  Sender: FDA-Public Use
  Company Number: JP-SANOFI-AVENTIS-2011SA036599

PATIENT
  Age: 34 Year
  Sex: Female

DRUGS (3)
  1. AMARYL [Suspect]
     Dosage: 25 TABLETS OF 3 MG
     Route: 065
  2. SERTRALINE HYDROCHLORIDE [Concomitant]
     Dosage: 2 TABLETS (25 MG) PER DOSE AFTER BREAKFAST
     Route: 065
  3. DOGMATYL [Suspect]
     Indication: DEPRESSION
     Dosage: AFTER MEALS
     Route: 065

REACTIONS (7)
  - MOANING [None]
  - INTENTIONAL OVERDOSE [None]
  - HYPOGLYCAEMIA [None]
  - DRUG INEFFECTIVE [None]
  - SUICIDE ATTEMPT [None]
  - ALTERED STATE OF CONSCIOUSNESS [None]
  - TONIC CONVULSION [None]
